FAERS Safety Report 16084238 (Version 13)
Quarter: 2021Q3

REPORT INFORMATION
  Report Type: Spontaneous
  Country: US (occurrence: US)
  Receive Date: 20190318
  Receipt Date: 20210826
  Transmission Date: 20211014
  Serious: No
  Sender: FDA-Public Use
  Company Number: US-PFIZER INC-2019115637

PATIENT
  Age: 39 Year
  Sex: Female

DRUGS (2)
  1. LYRICA [Suspect]
     Active Substance: PREGABALIN
     Indication: MOOD SWINGS
     Dosage: UNK
  2. LYRICA [Suspect]
     Active Substance: PREGABALIN
     Indication: ANXIETY

REACTIONS (6)
  - Pain in extremity [Unknown]
  - Off label use [Unknown]
  - Malaise [Unknown]
  - Speech disorder [Unknown]
  - Drug effective for unapproved indication [Unknown]
  - Cognitive disorder [Unknown]
